FAERS Safety Report 7361662-2 (Version None)
Quarter: 2011Q1

REPORT INFORMATION
  Report Type: 
  Country: None (occurrence: None)
  Receive Date: 20110318
  Receipt Date: 20110309
  Transmission Date: 20110831
  Serious: Yes (Hospitalization, Other)
  Sender: FDA-Public Use
  Company Number: DE-JNJFOC-20101003796

PATIENT
  Sex: Male

DRUGS (2)
  1. ARCOXIA [Concomitant]
  2. SIMPONI [Suspect]
     Indication: RHEUMATOID ARTHRITIS
     Route: 058

REACTIONS (7)
  - FATIGUE [None]
  - NASOPHARYNGITIS [None]
  - ABDOMINAL PAIN [None]
  - POLYNEUROPATHY [None]
  - ARTHRITIS [None]
  - FEBRILE INFECTION [None]
  - NAUSEA [None]
